FAERS Safety Report 4531953-9 (Version None)
Quarter: 2004Q4

REPORT INFORMATION
  Report Type: 
  Country: None (occurrence: None)
  Receive Date: 20041217
  Receipt Date: 20041202
  Transmission Date: 20050328
  Serious: Yes (Hospitalization, Other)
  Sender: FDA-Public Use
  Company Number: A-CH2004-08043

PATIENT
  Age: 72 Year
  Sex: Female

DRUGS (13)
  1. TRACLEER [Suspect]
     Indication: AUTOIMMUNE DISORDER
     Dosage: SEE IMAGE
     Route: 048
     Dates: start: 20031227, end: 20040104
  2. TRACLEER [Suspect]
     Indication: AUTOIMMUNE DISORDER
     Dosage: SEE IMAGE
     Route: 048
     Dates: start: 20040105, end: 20040527
  3. TRACLEER [Suspect]
     Indication: AUTOIMMUNE DISORDER
     Dosage: SEE IMAGE
     Route: 048
     Dates: end: 20041012
  4. TRACLEER [Suspect]
     Indication: AUTOIMMUNE DISORDER
     Dosage: SEE IMAGE
     Route: 048
     Dates: start: 20041015
  5. CLOPIDOGREL (CLOPIDOGREL) [Concomitant]
  6. NEXIUM [Concomitant]
  7. FOLIC ACID [Concomitant]
  8. PYRIDOXINE (PYRIDOXINE) [Concomitant]
  9. ACENOCOUMAROL (ACENOCOUMAROL) [Concomitant]
  10. VERAPAMIL [Concomitant]
  11. PENTAMIDINE (PENTAMIDINE) [Concomitant]
  12. SOLU-MEDROL [Concomitant]
  13. OXYGEN (OXYGEN) [Concomitant]

REACTIONS (6)
  - ANGINA PECTORIS [None]
  - DYSPNOEA [None]
  - EXANTHEM [None]
  - MYOCARDITIS [None]
  - OEDEMA PERIPHERAL [None]
  - PERICARDITIS [None]
